FAERS Safety Report 24562912 (Version 1)
Quarter: 2024Q4

REPORT INFORMATION
  Report Type: Report from Study
  Country: PR (occurrence: PR)
  Receive Date: 20241030
  Receipt Date: 20241030
  Transmission Date: 20250115
  Serious: Yes (Other)
  Sender: ABBVIE
  Company Number: PR-ABBVIE-5979068

PATIENT
  Age: 58 Year
  Sex: Female

DRUGS (1)
  1. HUMIRA [Suspect]
     Active Substance: ADALIMUMAB
     Indication: Rheumatoid arthritis
     Route: 058
     Dates: start: 20180526, end: 202407

REACTIONS (3)
  - Breast disorder [Unknown]
  - Skin ulcer [Recovering/Resolving]
  - Intraductal papilloma of breast [Not Recovered/Not Resolved]

NARRATIVE: CASE EVENT DATE: 20240101
